FAERS Safety Report 15106734 (Version 3)
Quarter: 2025Q1

REPORT INFORMATION
  Report Type: Spontaneous
  Country: US (occurrence: US)
  Receive Date: 20180704
  Receipt Date: 20250222
  Transmission Date: 20250409
  Serious: No
  Sender: SANOFI AVENTIS
  Company Number: US-SA-2018SA174432

PATIENT
  Age: 50 Year
  Sex: Female

DRUGS (2)
  1. DUPIXENT [Suspect]
     Active Substance: DUPILUMAB
     Indication: Dermatitis atopic
     Dosage: 300 MG, QOW
     Route: 058
     Dates: start: 20180423
  2. DUPIXENT [Suspect]
     Active Substance: DUPILUMAB
     Dosage: 300 MG QOW
     Route: 058
     Dates: start: 201907

REACTIONS (5)
  - Eczema [Unknown]
  - Rash [Unknown]
  - Injection site pain [Recovered/Resolved]
  - Dermatitis atopic [Unknown]
  - Rash macular [Unknown]

NARRATIVE: CASE EVENT DATE: 20180501
